FAERS Safety Report 7190471-2 (Version None)
Quarter: 2010Q4

REPORT INFORMATION
  Report Type: 
  Country: None (occurrence: None)
  Receive Date: 20101221
  Receipt Date: 20101221
  Transmission Date: 20110411
  Serious: Yes (Other)
  Sender: FDA-Public Use
  Company Number: None

PATIENT
  Age: 58 Year
  Sex: Male
  Weight: 113.3993 kg

DRUGS (4)
  1. PRISTIQ [Suspect]
     Indication: ANXIETY
     Dosage: 50 MG ONE A DAY
     Dates: start: 20090801, end: 20091101
  2. PRISTIQ [Suspect]
     Indication: DEPRESSION
     Dosage: 50 MG ONE A DAY
     Dates: start: 20090801, end: 20091101
  3. PRISTIQ [Suspect]
     Indication: ANXIETY
     Dosage: 100 MG ONE A DAY
     Dates: start: 20091101, end: 20100801
  4. PRISTIQ [Suspect]
     Indication: DEPRESSION
     Dosage: 100 MG ONE A DAY
     Dates: start: 20091101, end: 20100801

REACTIONS (5)
  - APNOEA [None]
  - CHEST PAIN [None]
  - FEAR OF DEATH [None]
  - PAIN [None]
  - WEIGHT INCREASED [None]
